FAERS Safety Report 4655760-1 (Version None)
Quarter: 2005Q2

REPORT INFORMATION
  Report Type: 
  Country: None (occurrence: None)
  Receive Date: 20050507
  Receipt Date: 20050117
  Transmission Date: 20051028
  Serious: Yes (Other)
  Sender: FDA-Public Use
  Company Number: US-MERCK-0501USA02843

PATIENT
  Age: 64 Year
  Sex: Male
  Weight: 84 kg

DRUGS (12)
  1. VIOXX [Suspect]
     Indication: BACK PAIN
     Route: 048
     Dates: start: 20000928, end: 20010430
  2. VIOXX [Suspect]
     Route: 048
     Dates: start: 20020709, end: 20021113
  3. VIOXX [Suspect]
     Route: 048
     Dates: start: 20030519, end: 20030719
  4. VIOXX [Suspect]
     Route: 048
     Dates: start: 20040217, end: 20040930
  5. VIOXX [Suspect]
     Indication: ARTHRALGIA
     Route: 048
     Dates: start: 20000928, end: 20010430
  6. VIOXX [Suspect]
     Route: 048
     Dates: start: 20020709, end: 20021113
  7. VIOXX [Suspect]
     Route: 048
     Dates: start: 20030519, end: 20030719
  8. VIOXX [Suspect]
     Route: 048
     Dates: start: 20040217, end: 20040930
  9. ASPIRIN [Concomitant]
     Indication: PROPHYLAXIS
     Route: 065
     Dates: start: 19960901
  10. ASPIRIN [Concomitant]
     Route: 065
     Dates: start: 19960901
  11. BEXTRA [Concomitant]
     Route: 065
     Dates: start: 20030201, end: 20030201
  12. ACYCLOVIR [Concomitant]
     Route: 065

REACTIONS (5)
  - BLINDNESS UNILATERAL [None]
  - HYPERCHOLESTEROLAEMIA [None]
  - HYPERTENSION [None]
  - RETINAL VASCULAR THROMBOSIS [None]
  - URTICARIA [None]
